FAERS Safety Report 15088286 (Version 1)
Quarter: 2018Q2

REPORT INFORMATION
  Report Type: Report from Study
  Country: BR (occurrence: BR)
  Receive Date: 20180629
  Receipt Date: 20180629
  Transmission Date: 20180711
  Serious: Yes (Hospitalization)
  Sender: FDA-Public Use
  Company Number: BR-UCBSA-2018027652

PATIENT
  Sex: Male
  Weight: 78 kg

DRUGS (1)
  1. LEVETIRACETAM. [Suspect]
     Active Substance: LEVETIRACETAM
     Indication: SEIZURE
     Dosage: 1 TABLET OF 250MG IN THE MORNING AND 2 TABLETS OF 250MG (500MG) AT NIGHT
     Route: 048
     Dates: start: 201805

REACTIONS (2)
  - Off label use [Unknown]
  - Seizure [Unknown]

NARRATIVE: CASE EVENT DATE: 2018
